FAERS Safety Report 6404241-3 (Version None)
Quarter: 2009Q4

REPORT INFORMATION
  Report Type: 
  Country: None (occurrence: None)
  Receive Date: 20091016
  Receipt Date: 20091008
  Transmission Date: 20100525
  Serious: Yes (Hospitalization, Congenital Anomaly)
  Sender: FDA-Public Use
  Company Number: A0680414A

PATIENT
  Sex: Male
  Weight: 2.8 kg

DRUGS (7)
  1. PAXIL [Suspect]
     Indication: DEPRESSION
     Dates: start: 19880601, end: 20071001
  2. VITAMIN TAB [Concomitant]
  3. PHENOBARBITAL [Concomitant]
  4. FLEXERIL [Concomitant]
  5. NAPROSYN [Concomitant]
  6. SEPTRA DS [Concomitant]
  7. FOLIC ACID [Concomitant]

REACTIONS (9)
  - ATRIAL SEPTAL DEFECT [None]
  - COGNITIVE DISORDER [None]
  - CONGENITAL ANOMALY [None]
  - DRUG EXPOSURE DURING PREGNANCY [None]
  - FALLOT'S TETRALOGY [None]
  - RIGHT VENTRICLE OUTFLOW TRACT OBSTRUCTION [None]
  - TRICUSPID VALVE INCOMPETENCE [None]
  - VENTRICULAR HYPERTROPHY [None]
  - VENTRICULAR SEPTAL DEFECT [None]
